FAERS Safety Report 8845551 (Version 1)
Quarter: 2012Q4

REPORT INFORMATION
  Report Type: 
  Country: CA (occurrence: CA)
  Receive Date: 20121017
  Receipt Date: 20121017
  Transmission Date: 20130627
  Serious: Yes (Hospitalization, Other)
  Sender: FDA-Public Use
  Company Number: PHHY2012CA034870

PATIENT
  Sex: Female

DRUGS (1)
  1. SANDOSTATIN LAR [Suspect]
     Indication: CARCINOID TUMOUR OF THE SMALL BOWEL
     Dosage: 40 mg, once in a month
     Route: 030
     Dates: start: 20091230

REACTIONS (4)
  - Tachycardia [Recovered/Resolved]
  - Bronchopneumonia [Recovered/Resolved]
  - Lung disorder [Unknown]
  - Malaise [Unknown]
